FAERS Safety Report 20128470 (Version 1)
Quarter: 2021Q4

REPORT INFORMATION
  Report Type: Report from Study
  Country: US (occurrence: None)
  Receive Date: 20211130
  Receipt Date: 20211130
  Transmission Date: 20220303
  Serious: Yes (Other)
  Sender: FDA-Public Use
  Company Number: US-Merck Healthcare KGaA-9282681

PATIENT
  Sex: Female

DRUGS (1)
  1. REBIF [Suspect]
     Active Substance: INTERFERON BETA-1A
     Indication: Product used for unknown indication
     Route: 058
     Dates: start: 20200713, end: 202105

REACTIONS (5)
  - Tremor [Recovered/Resolved]
  - Seizure [Recovered/Resolved]
  - Pain [Unknown]
  - Pyrexia [Unknown]
  - Chills [Unknown]
